FAERS Safety Report 9184368 (Version 1)
Quarter: 2013Q1

REPORT INFORMATION
  Report Type: Spontaneous
  Country: CA (occurrence: CA)
  Receive Date: 20130322
  Receipt Date: 20130322
  Transmission Date: 20140127
  Serious: Yes (Other)
  Sender: FDA-Public Use
  Company Number: CA-GLAXOSMITHKLINE-A1016755A

PATIENT
  Age: 43 Year
  Sex: Female
  Weight: 72.7 kg

DRUGS (7)
  1. NICODERM CQ [Suspect]
     Indication: SMOKING CESSATION THERAPY
     Route: 062
  2. NICORETTE QUICKMIST [Suspect]
     Indication: SMOKING CESSATION THERAPY
     Dosage: 1SPR PER DAY
     Route: 055
     Dates: start: 20130302, end: 20130302
  3. COGENTIN [Suspect]
     Indication: DEPRESSION
     Dosage: 2MG PER DAY
  4. CITALOPRAM [Suspect]
     Indication: DEPRESSION
     Dosage: 40MG PER DAY
  5. ZYPREXA [Suspect]
     Indication: DEPRESSION
     Dosage: 2MG PER DAY
  6. ANTIDEPRESSANT [Suspect]
     Indication: DEPRESSION
  7. UNKNOWN [Suspect]
     Indication: DEPRESSION

REACTIONS (10)
  - Convulsion [Not Recovered/Not Resolved]
  - Vomiting [Unknown]
  - Diarrhoea [Unknown]
  - Euphoric mood [Unknown]
  - Glassy eyes [Unknown]
  - Dizziness [Unknown]
  - Malaise [Unknown]
  - Asthenia [Unknown]
  - Abnormal behaviour [Unknown]
  - Drug interaction [Unknown]
